FAERS Safety Report 13598198 (Version 2)
Quarter: 2017Q2

REPORT INFORMATION
  Report Type: Spontaneous
  Country: US (occurrence: US)
  Receive Date: 20170531
  Receipt Date: 20170608
  Transmission Date: 20170830
  Serious: No
  Sender: FDA-Public Use
  Company Number: US-HORIZON-PEN-0248-2017

PATIENT
  Age: 63 Year
  Sex: Female

DRUGS (4)
  1. PATADAY DROPS [Concomitant]
  2. PENNSAID [Suspect]
     Active Substance: DICLOFENAC SODIUM
     Indication: PAIN IN EXTREMITY
     Dosage: 1 SAMPLE PACKET EVERY 2-3 DAYS
     Route: 061
     Dates: start: 20170516
  3. NAPROXEN. [Concomitant]
     Active Substance: NAPROXEN
  4. SYNTHROID [Concomitant]
     Active Substance: LEVOTHYROXINE SODIUM

REACTIONS (2)
  - Pruritus [Recovering/Resolving]
  - Off label use [Unknown]
